FAERS Safety Report 12189371 (Version 1)
Quarter: 2016Q1

REPORT INFORMATION
  Report Type: Spontaneous
  Country: US (occurrence: US)
  Receive Date: 20160317
  Receipt Date: 20160317
  Transmission Date: 20160526
  Serious: No
  Sender: FDA-Public Use
  Company Number: US-ASTRAZENECA-2016SE26171

PATIENT
  Sex: Male
  Weight: 7.7 kg

DRUGS (1)
  1. SYNAGIS [Suspect]
     Active Substance: PALIVIZUMAB
     Indication: ANTIVIRAL PROPHYLAXIS
     Dosage: 100 MG IN 1 ML,15 MG/KG, MONTHLY
     Route: 030

REACTIONS (4)
  - Cough [Unknown]
  - Viral infection [Unknown]
  - Pain [Unknown]
  - Influenza [Unknown]
